FAERS Safety Report 8924980 (Version 2)
Quarter: 2013Q1

REPORT INFORMATION
  Report Type: Spontaneous
  Country: US (occurrence: US)
  Receive Date: 20121126
  Receipt Date: 20130206
  Transmission Date: 20140127
  Serious: Yes (Disabling, Other)
  Sender: FDA-Public Use
  Company Number: US-CELGENEUS-163-21880-12112450

PATIENT
  Sex: Female

DRUGS (1)
  1. REVLIMID [Suspect]
     Indication: PLASMA CELL MYELOMA
     Dosage: 10 MILLIGRAM
     Route: 048
     Dates: start: 20110112, end: 2012

REACTIONS (1)
  - Pancreatic carcinoma [Not Recovered/Not Resolved]
